FAERS Safety Report 4526056-3 (Version None)
Quarter: 2004Q4

REPORT INFORMATION
  Report Type: 
  Country: None (occurrence: None)
  Receive Date: 20041129
  Receipt Date: 20040804
  Transmission Date: 20050328
  Serious: Yes (Hospitalization)
  Sender: FDA-Public Use
  Company Number: USA040874662

PATIENT
  Age: 25 Year
  Sex: Male

DRUGS (2)
  1. ZYPREXA [Suspect]
     Dosage: 10 MG/L DAY
     Dates: start: 20040601
  2. DIVALPROEX SODIUM [Concomitant]

REACTIONS (2)
  - KETOACIDOSIS [None]
  - PSYCHOTIC DISORDER [None]
